FAERS Safety Report 8544836-4 (Version None)
Quarter: 2012Q3

REPORT INFORMATION
  Report Type: 
  Country: None (occurrence: None)
  Receive Date: 20120717
  Receipt Date: 20120705
  Transmission Date: 20120928
  Serious: Yes (Hospitalization)
  Sender: FDA-Public Use
  Company Number: B0814402A

PATIENT
  Age: 5 Year
  Sex: Male

DRUGS (6)
  1. ARIPIPRAZOLE [Suspect]
  2. LAMOTRIGINE [Suspect]
     Indication: ABNORMAL BEHAVIOUR
  3. DEXTROAMPHETAMINE SULFATE [Suspect]
     Indication: ABNORMAL BEHAVIOUR
  4. LEVETIRACETAM [Suspect]
     Indication: GUILLAIN-BARRE SYNDROME
  5. VALPROIC ACID [Suspect]
  6. METHYLPHENIDATE HCL [Suspect]
     Indication: ABNORMAL BEHAVIOUR

REACTIONS (9)
  - ATAXIA [None]
  - THROMBOCYTOPENIA [None]
  - AGGRESSION [None]
  - RASH [None]
  - COORDINATION ABNORMAL [None]
  - CHOREA [None]
  - MUSCULAR WEAKNESS [None]
  - ABNORMAL BEHAVIOUR [None]
  - MOOD ALTERED [None]
